FAERS Safety Report 9672200 (Version 1)
Quarter: 2013Q4

REPORT INFORMATION
  Report Type: Spontaneous
  Country: US (occurrence: US)
  Receive Date: 20131106
  Receipt Date: 20131106
  Transmission Date: 20140711
  Serious: No
  Sender: FDA-Public Use
  Company Number: US-ENDO PHARMACEUTICALS INC.-HCDA20130046

PATIENT
  Age: 29 Year
  Sex: Female
  Weight: 59.02 kg

DRUGS (2)
  1. HYDROCODONE/ACETAMINOPHEN 10MG/500MG [Suspect]
     Indication: PAIN
     Dosage: 10MG/500MG
     Route: 048
  2. BUTALBITAL [Concomitant]
     Indication: MIGRAINE
     Dosage: UNKNOWN
     Route: 065

REACTIONS (6)
  - Abdominal pain upper [Unknown]
  - Headache [Unknown]
  - Inappropriate schedule of drug administration [Unknown]
  - Nausea [Unknown]
  - Vomiting [Unknown]
  - Drug ineffective [Not Recovered/Not Resolved]
